FAERS Safety Report 4754936-2 (Version None)
Quarter: 2005Q3

REPORT INFORMATION
  Report Type: 
  Country: None (occurrence: None)
  Receive Date: 20050829
  Receipt Date: 20050822
  Transmission Date: 20060218
  Serious: Yes (Hospitalization)
  Sender: FDA-Public Use
  Company Number: BR-ROCHE-415269

PATIENT
  Age: 27 Year
  Sex: Female
  Weight: 60 kg

DRUGS (2)
  1. ROACUTAN [Suspect]
     Indication: ACNE
     Route: 048
     Dates: start: 20040315, end: 20040715
  2. ROACUTAN [Suspect]
     Route: 048
     Dates: start: 20040715, end: 20040915

REACTIONS (5)
  - ASTHMA [None]
  - DRY EYE [None]
  - EYE PRURITUS [None]
  - GINGIVAL BLEEDING [None]
  - VAGINAL HAEMORRHAGE [None]
